FAERS Safety Report 18059436 (Version 1)
Quarter: 2020Q3

REPORT INFORMATION
  Report Type: Spontaneous
  Country: US (occurrence: US)
  Receive Date: 20200723
  Receipt Date: 20200723
  Transmission Date: 20201103
  Serious: No
  Sender: FDA-Public Use
  Company Number: US-PFIZER INC-2020277773

PATIENT
  Age: 70 Year
  Sex: Female
  Weight: 90.72 kg

DRUGS (1)
  1. ADVIL [Suspect]
     Active Substance: IBUPROFEN
     Indication: JOINT SWELLING
     Dosage: UNK

REACTIONS (3)
  - Clumsiness [Unknown]
  - Intentional product misuse [Unknown]
  - Abnormal behaviour [Unknown]

NARRATIVE: CASE EVENT DATE: 20200720
